FAERS Safety Report 18061857 (Version 1)
Quarter: 2020Q3

REPORT INFORMATION
  Report Type: Report from Study
  Country: IT (occurrence: IT)
  Receive Date: 20200723
  Receipt Date: 20200723
  Transmission Date: 20201103
  Serious: Yes (Hospitalization)
  Sender: FDA-Public Use
  Company Number: IT-PFIZER INC-2020279776

PATIENT
  Age: 88 Year
  Sex: Female

DRUGS (10)
  1. COUMADIN [Concomitant]
     Active Substance: WARFARIN SODIUM
     Route: 048
  2. TORVAST [Concomitant]
     Active Substance: ATORVASTATIN
     Route: 048
  3. OMEPRAZOL ZENTIVA [Concomitant]
     Route: 048
  4. AMIODARONE SANDOZ [Concomitant]
     Active Substance: AMIODARONE
     Route: 048
  5. CARDURA [Suspect]
     Active Substance: DOXAZOSIN MESYLATE
     Indication: HYPERTENSION
     Dosage: 1 DF, 1X/DAY
     Route: 048
     Dates: start: 20191210, end: 20191216
  6. LASIX [Concomitant]
     Active Substance: FUROSEMIDE
     Route: 048
  7. ZYLORIC [Concomitant]
     Active Substance: ALLOPURINOL
     Route: 048
  8. TAREG [Concomitant]
     Active Substance: VALSARTAN
     Route: 048
  9. CALCITRIOL TEVA [Concomitant]
     Route: 048
  10. EUTIROX [Concomitant]
     Active Substance: LEVOTHYROXINE SODIUM
     Route: 048

REACTIONS (2)
  - Oedema peripheral [Recovered/Resolved]
  - Hypotension [Recovered/Resolved]

NARRATIVE: CASE EVENT DATE: 20191216
